FAERS Safety Report 5451854-1 (Version None)
Quarter: 2007Q3

REPORT INFORMATION
  Report Type: 
  Country: None (occurrence: None)
  Receive Date: 20070806
  Receipt Date: 20070124
  Transmission Date: 20080115
  Serious: Yes (Hospitalization)
  Sender: FDA-Public Use
  Company Number: 15579

PATIENT
  Age: 75 Year
  Sex: Male

DRUGS (6)
  1. CYTARABINE [Suspect]
     Indication: ACUTE MYELOID LEUKAEMIA
     Dosage: 20 MG/M2 DAILY; SC
     Route: 058
     Dates: start: 20061113
  2. LIPITOR [Concomitant]
  3. FLOMAX [Concomitant]
  4. ALBUTEROL [Concomitant]
  5. ADVAIR DISKUS 100/50 [Concomitant]
  6. CITRUCEL [Concomitant]

REACTIONS (2)
  - BACTERIAL INFECTION [None]
  - PYREXIA [None]
